FAERS Safety Report 9336351 (Version 1)
Quarter: 2013Q2

REPORT INFORMATION
  Report Type: Report from Study
  Country: US (occurrence: US)
  Receive Date: 20130607
  Receipt Date: 20130607
  Transmission Date: 20140414
  Serious: Yes (Death)
  Sender: FDA-Public Use
  Company Number: US-CELGENEUS-163-50794-13060531

PATIENT
  Age: 71 Year
  Sex: Male

DRUGS (2)
  1. VIDAZA [Suspect]
     Indication: MYELODYSPLASTIC SYNDROME
     Dosage: 75 MILLIGRAM/SQ. METER
     Route: 041
     Dates: start: 20130415, end: 20130418
  2. PLERIXAFOR [Suspect]
     Indication: MYELODYSPLASTIC SYNDROME
     Dosage: 560 MILLIGRAM/SQ. METER
     Route: 041
     Dates: start: 20130415, end: 20130518

REACTIONS (1)
  - Death [Fatal]
